FAERS Safety Report 9648938 (Version 3)
Quarter: 2014Q3

REPORT INFORMATION
  Report Type: Spontaneous
  Country: US (occurrence: None)
  Receive Date: 20131018
  Receipt Date: 20140722
  Transmission Date: 20150326
  Serious: No
  Sender: FDA-Public Use
  Company Number: AEGR000121

PATIENT
  Age: 10 Year
  Sex: Female
  Weight: 35.8 kg

DRUGS (4)
  1. ATORVASTATIN ( ATORVASTATIN) TABLET [Concomitant]
  2. JUXTAPID [Suspect]
     Active Substance: LOMITAPIDE MESYLATE
     Indication: TYPE IIA HYPERLIPIDAEMIA
     Route: 048
     Dates: start: 20130802, end: 20130817
  3. ZETIA ( EZETIMIBE) TABLET [Concomitant]
  4. NIACIN ( NIACIN) [Concomitant]

REACTIONS (3)
  - Inappropriate schedule of drug administration [None]
  - Medication error [None]
  - Drug administered to patient of inappropriate age [None]

NARRATIVE: CASE EVENT DATE: 20130802
